FAERS Safety Report 10110691 (Version 1)
Quarter: 2014Q2

REPORT INFORMATION
  Report Type: Spontaneous
  Country: US (occurrence: US)
  Receive Date: 20140425
  Receipt Date: 20140425
  Transmission Date: 20141212
  Serious: Yes (Other)
  Sender: FDA-Public Use
  Company Number: US-B.I. PHARMACEUTICALS,INC./RIDGEFIELD-2014-BI-18229BP

PATIENT
  Sex: Female

DRUGS (19)
  1. COMBIVENT [Suspect]
     Indication: CHRONIC OBSTRUCTIVE PULMONARY DISEASE
     Dosage: STRENGTH: 20 MCG / 100 MCG; DAILY DOSE: 80 MCG/ 400 MCG
     Route: 055
     Dates: start: 201309
  2. ALBUTEROL [Concomitant]
     Route: 055
  3. AMOXIL [Concomitant]
     Route: 048
  4. ASPIRIN [Concomitant]
     Route: 048
  5. BECLOMETHASONE [Concomitant]
     Route: 055
  6. CITALOPRAM [Concomitant]
     Route: 048
  7. DIPHENHYDRAMINE [Concomitant]
     Route: 048
  8. DOCUSATE [Concomitant]
     Route: 048
  9. ERGOCALCIFEROL [Concomitant]
     Route: 048
  10. FLAX SEED OIL [Concomitant]
     Route: 048
  11. FLONASE [Concomitant]
     Dosage: (NASAL SPRAY)
     Route: 045
  12. FLUOCINONIDE [Concomitant]
     Route: 065
  13. GABAPENTIN [Concomitant]
     Route: 048
  14. HYDROXYZINE PAMOATE [Concomitant]
     Route: 048
  15. PRAVASTATIN [Concomitant]
     Route: 048
  16. PREDNISONE [Concomitant]
     Route: 048
  17. SUDAFED [Concomitant]
     Route: 048
  18. SIMETHICONE [Concomitant]
     Route: 065
  19. TRAMADOL [Concomitant]
     Route: 048

REACTIONS (1)
  - Brain neoplasm [Unknown]
